FAERS Safety Report 23991097 (Version 1)
Quarter: 2024Q2

REPORT INFORMATION
  Report Type: Spontaneous
  Country: AE (occurrence: AE)
  Receive Date: 20240619
  Receipt Date: 20240619
  Transmission Date: 20240715
  Serious: Yes (Hospitalization)
  Sender: FDA-Public Use
  Company Number: AE-ELI_LILLY_AND_COMPANY-AE202406008496

PATIENT
  Sex: Female

DRUGS (1)
  1. TALTZ [Suspect]
     Active Substance: IXEKIZUMAB
     Indication: Psoriatic arthropathy
     Dosage: UNK
     Route: 065

REACTIONS (1)
  - Infection [Recovered/Resolved]
